FAERS Safety Report 5093047-6 (Version None)
Quarter: 2006Q3

REPORT INFORMATION
  Report Type: 
  Country: None (occurrence: None)
  Receive Date: 20060830
  Receipt Date: 20050704
  Transmission Date: 20061208
  Serious: Yes (Disabling)
  Sender: FDA-Public Use
  Company Number: UG-GILEAD-2005-0008479

PATIENT
  Sex: Female

DRUGS (9)
  1. TENOFOVIR DISOPROXIL FUMARATE [Suspect]
     Indication: HIV INFECTION
     Route: 048
     Dates: start: 20031124
  2. LAMIVUDINE [Suspect]
     Indication: HIV INFECTION
     Dates: start: 20031124
  3. ZIDOVUDINE [Suspect]
     Indication: HIV INFECTION
     Dates: start: 20031124
  4. ISONIAZID [Suspect]
     Indication: PULMONARY TUBERCULOSIS
  5. STREPTOMYCIN [Concomitant]
  6. PYRAZINAMIDE [Concomitant]
  7. ETHAMBUTOL HYDROCHLORIDE [Concomitant]
  8. RIFAMPICIN [Concomitant]
  9. PYRIDOXINE HCL [Concomitant]

REACTIONS (3)
  - MUSCLE ABSCESS [None]
  - MYOPATHY [None]
  - OSTEOARTHRITIS [None]
